FAERS Safety Report 20815596 (Version 1)
Quarter: 2022Q2

REPORT INFORMATION
  Report Type: Spontaneous
  Country: US (occurrence: US)
  Receive Date: 20220511
  Receipt Date: 20220511
  Transmission Date: 20220721
  Serious: No
  Sender: FDA-Public Use
  Company Number: US-PFIZER INC-2019292975

PATIENT
  Age: 83 Year
  Sex: Female
  Weight: 73.94 kg

DRUGS (2)
  1. SKELAXIN [Suspect]
     Active Substance: METAXALONE
     Indication: Muscle spasms
     Dosage: UNK
     Dates: start: 2013
  2. SKELAXIN [Suspect]
     Active Substance: METAXALONE
     Indication: Fibromyalgia

REACTIONS (5)
  - Intervertebral disc degeneration [Unknown]
  - Sciatica [Unknown]
  - Sinus disorder [Unknown]
  - Product dispensing error [Unknown]
  - Intentional product misuse [Unknown]
